FAERS Safety Report 8769105 (Version 1)
Quarter: 2012Q4

REPORT INFORMATION
  Report Type: 
  Country: US (occurrence: US)
  Receive Date: 20120904
  Receipt Date: 20120904
  Transmission Date: 20130627
  Serious: Yes (Hospitalization)
  Sender: FDA-Public Use
  Company Number: US-ELI_LILLY_AND_COMPANY-US201208007643

PATIENT
  Sex: Female

DRUGS (3)
  1. HUMULIN REGULAR [Suspect]
     Dosage: UNK, unknown
  2. HUMULIN REGULAR [Suspect]
     Dosage: 1 ml, single
  3. HEPARIN [Concomitant]

REACTIONS (3)
  - Hospitalisation [Unknown]
  - Wrong drug administered [Recovered/Resolved]
  - Hypoglycaemia [Recovered/Resolved]
